FAERS Safety Report 11258005 (Version 1)
Quarter: 2015Q3

REPORT INFORMATION
  Report Type: Spontaneous
  Country: US (occurrence: None)
  Receive Date: 20150708
  Receipt Date: 20150708
  Transmission Date: 20151125
  Serious: Yes (Other)
  Sender: FDA-Public Use
  Company Number: 001942617A

PATIENT
  Age: 29 Year
  Sex: Female

DRUGS (4)
  1. PROACTIVPLUS SKIN SMOOTHING EXFOLIATOR [Suspect]
     Active Substance: BENZOYL PEROXIDE
     Indication: ACNE
     Dosage: ONCE, DERMAL
     Dates: start: 20150605
  2. PROACTIV SKIN LIGHTENING [Suspect]
     Active Substance: HYDROQUINONE
     Indication: ACNE
     Dosage: ONCE, DERMAL?
     Dates: start: 20150605
  3. PROACTIV PLUS PORE TARGETING TREATMENT [Suspect]
     Active Substance: BENZOYL PEROXIDE
     Indication: ACNE
     Dosage: ONCE, DERMAL
     Dates: start: 20150605
  4. PROACTIV PLUS COMPLEXION PERFECTING HYDRATOR [Suspect]
     Active Substance: SALICYLIC ACID
     Indication: ACNE
     Dosage: ONCE, DERMAL
     Dates: start: 20150605

REACTIONS (8)
  - Erythema [None]
  - Pruritus [None]
  - Eye swelling [None]
  - Swelling face [None]
  - Local swelling [None]
  - Skin exfoliation [None]
  - Dry skin [None]
  - Skin tightness [None]

NARRATIVE: CASE EVENT DATE: 20150605
